FAERS Safety Report 8296590-1 (Version None)
Quarter: 2012Q2

REPORT INFORMATION
  Report Type: 
  Country: None (occurrence: None)
  Receive Date: 20120418
  Receipt Date: 20120418
  Transmission Date: 20120825
  Serious: Yes (Hospitalization)
  Sender: FDA-Public Use
  Company Number: None

PATIENT
  Sex: Male
  Weight: 95.3 kg

DRUGS (2)
  1. WELLBUTRIN XL [Suspect]
     Indication: SCHIZOPHRENIA
     Dosage: 150MG XL
     Route: 048
  2. MIRTAZAPINE [Concomitant]
     Indication: SCHIZOPHRENIA
     Dosage: 15MG
     Route: 048

REACTIONS (5)
  - DEHYDRATION [None]
  - HEAT EXHAUSTION [None]
  - SYNCOPE [None]
  - CONVULSIVE THRESHOLD LOWERED [None]
  - GRAND MAL CONVULSION [None]
